FAERS Safety Report 16353379 (Version 2)
Quarter: 2019Q2

REPORT INFORMATION
  Report Type: Report from Study
  Country: CA (occurrence: CA)
  Receive Date: 20190524
  Receipt Date: 20190628
  Transmission Date: 20190711
  Serious: Yes (Other)
  Sender: FDA-Public Use
  Company Number: CA-EMD SERONO-9055734

PATIENT
  Age: 54 Year
  Sex: Female

DRUGS (2)
  1. MAVENCLAD [Suspect]
     Active Substance: CLADRIBINE
     Dosage: SECOND WEEK THERAPY
     Route: 048
     Dates: end: 20181228
  2. MAVENCLAD [Suspect]
     Active Substance: CLADRIBINE
     Indication: RELAPSING-REMITTING MULTIPLE SCLEROSIS
     Dosage: FIRST WEEK THERAPY WAS SCHEDULED TO TAKE 10 TABLETS
     Route: 048
     Dates: start: 20181126

REACTIONS (7)
  - Diarrhoea [Recovered/Resolved]
  - Skin papilloma [Recovering/Resolving]
  - Nausea [Recovered/Resolved]
  - Type 2 diabetes mellitus [Recovering/Resolving]
  - Poor quality sleep [Unknown]
  - Pain [Unknown]
  - Headache [Recovered/Resolved]

NARRATIVE: CASE EVENT DATE: 20181126
